FAERS Safety Report 11498313 (Version 1)
Quarter: 2015Q3

REPORT INFORMATION
  Report Type: Spontaneous
  Country: FR (occurrence: FR)
  Receive Date: 20150911
  Receipt Date: 20150911
  Transmission Date: 20151125
  Serious: Yes (Other)
  Sender: FDA-Public Use
  Company Number: FR-BAXALTA-2015BLT001580

PATIENT
  Age: 32 Year
  Sex: Female

DRUGS (4)
  1. ADVATE [Suspect]
     Active Substance: ANTIHEMOPHILIC FACTOR, HUMAN RECOMBINANT
     Indication: FACTOR VIII DEFICIENCY
     Dosage: 40 IU/KG, EVERY 12 HOURS EVER-DECREASING FROM 2000 TO 5000 IU FOR 5 DAYS
     Route: 042
  2. ADVATE [Suspect]
     Active Substance: ANTIHEMOPHILIC FACTOR, HUMAN RECOMBINANT
     Indication: FACTOR V DEFICIENCY
  3. AMOXICILLIN. [Concomitant]
     Active Substance: AMOXICILLIN
     Indication: PROPHYLAXIS
     Route: 065
  4. REMIFENTANIL ACTAVIS [Concomitant]
     Active Substance: REMIFENTANIL
     Indication: LABOUR PAIN
     Dosage: 25 MG, EVERY 5 MINUTES
     Route: 042

REACTIONS (2)
  - No adverse event [Recovered/Resolved]
  - Exposure during pregnancy [Recovered/Resolved]
